FAERS Safety Report 10506781 (Version 1)
Quarter: 2014Q4

REPORT INFORMATION
  Report Type: Spontaneous
  Country: US (occurrence: None)
  Receive Date: 20141007
  Receipt Date: 20141007
  Transmission Date: 20150528
  Serious: Yes (Life-Threatening)
  Sender: FDA-Public Use
  Company Number: 54973 AE # 1560

PATIENT
  Age: 38 Year
  Sex: Female

DRUGS (7)
  1. EPI-PEN PRN [Concomitant]
  2. NORCO 5 MG TID [Concomitant]
  3. BALZIVA [Concomitant]
     Active Substance: ETHINYL ESTRADIOL\NORETHINDRONE
  4. BENADRYL [Concomitant]
     Active Substance: DIPHENHYDRAMINE HYDROCHLORIDE
  5. COLD N COUGH 4 KIDS [Suspect]
     Active Substance: HOMEOPATHICS
     Indication: NASOPHARYNGITIS
     Dosage: 3 TSP ONCE BY MOUTH
  6. FLEXERIL [Concomitant]
     Active Substance: CYCLOBENZAPRINE HYDROCHLORIDE
  7. NEURONTIN 900MG TID [Concomitant]

REACTIONS (7)
  - Swelling face [None]
  - Vomiting [None]
  - Hypersensitivity [None]
  - Swollen tongue [None]
  - Lip swelling [None]
  - Nausea [None]
  - Tremor [None]

NARRATIVE: CASE EVENT DATE: 20140917
